FAERS Safety Report 5754759-1 (Version None)
Quarter: 2008Q2

REPORT INFORMATION
  Report Type: 
  Country: None (occurrence: None)
  Receive Date: 20080527
  Receipt Date: 20080513
  Transmission Date: 20081010
  Serious: Yes (Other)
  Sender: FDA-Public Use
  Company Number: 163-21880-08020155

PATIENT
  Sex: Female

DRUGS (1)
  1. REVLIMID [Suspect]
     Indication: MYELODYSPLASTIC SYNDROME
     Dosage: 5 MG, 1 IN 1 D, ORAL; 5 MG, EVERY OTHER DAY, ORAL
     Route: 048
     Dates: start: 20061001

REACTIONS (5)
  - DIARRHOEA [None]
  - FALL [None]
  - PANCYTOPENIA [None]
  - PRURITUS [None]
  - RESPIRATORY ARREST [None]
